FAERS Safety Report 7863301-0 (Version None)
Quarter: 2011Q4

REPORT INFORMATION
  Report Type: 
  Country: None (occurrence: None)
  Receive Date: 20111026
  Receipt Date: 20111018
  Transmission Date: 20120403
  Serious: Yes (Death, Hospitalization)
  Sender: FDA-Public Use
  Company Number: 2011SP049044

PATIENT
  Age: 51 Year
  Sex: Male

DRUGS (2)
  1. PEG-INTRON [Suspect]
     Indication: HEPATITIS C
     Dates: start: 20110718
  2. RIBAVIRIN [Suspect]
     Indication: HEPATITIS C
     Dates: start: 20110718

REACTIONS (3)
  - COMPLETED SUICIDE [None]
  - ACCIDENTAL DEATH [None]
  - LACERATION [None]
